FAERS Safety Report 20973069 (Version 4)
Quarter: 2022Q4

REPORT INFORMATION
  Report Type: Spontaneous
  Country: US (occurrence: US)
  Receive Date: 20220617
  Receipt Date: 20221208
  Transmission Date: 20230112
  Serious: Yes (Other)
  Sender: FDA-Public Use
  Company Number: US-PROPHARMA-189

PATIENT
  Sex: Female

DRUGS (2)
  1. AYVAKIT [Suspect]
     Active Substance: AVAPRITINIB
     Indication: Systemic mastocytosis
     Route: 048
     Dates: start: 20210805
  2. AYVAKIT [Suspect]
     Active Substance: AVAPRITINIB
     Route: 065
     Dates: start: 20220212

REACTIONS (20)
  - Surgery [Unknown]
  - Depression suicidal [Unknown]
  - Throat tightness [Unknown]
  - Dysphagia [Unknown]
  - Skin laceration [Unknown]
  - Vitamin B12 decreased [Unknown]
  - Impaired healing [Unknown]
  - Malaise [Unknown]
  - Hand dermatitis [Unknown]
  - Anxiety [Unknown]
  - Aphasia [Unknown]
  - Fatigue [Unknown]
  - Asthenia [Unknown]
  - Dyspnoea [Unknown]
  - Memory impairment [Unknown]
  - Insomnia [Unknown]
  - Fear [Unknown]
  - Fear of death [Unknown]
  - Off label use [Unknown]
  - Product dose omission issue [Unknown]
